FAERS Safety Report 9814512 (Version 1)
Quarter: 2014Q1

REPORT INFORMATION
  Report Type: Spontaneous
  Country: US (occurrence: US)
  Receive Date: 20140113
  Receipt Date: 20140113
  Transmission Date: 20141002
  Serious: No
  Sender: FDA-Public Use
  Company Number: US-BIOGENIDEC-2013BI113440

PATIENT
  Sex: Male

DRUGS (13)
  1. TECFIDERA [Suspect]
     Indication: MULTIPLE SCLEROSIS
     Route: 048
     Dates: start: 20131104
  2. TECFIDERA [Suspect]
     Indication: MULTIPLE SCLEROSIS
     Route: 048
  3. ATORVASTATIN CALCIUM [Concomitant]
  4. BUTRANS [Concomitant]
  5. CELEBREX [Concomitant]
  6. CYMBALTA [Concomitant]
  7. LAMOTRIGINE ER [Concomitant]
  8. LISINOPRIL [Concomitant]
  9. OMEPRAZOLE-SODIUM BICARBONATE [Concomitant]
  10. QUETIAPINE FUMARATE [Concomitant]
  11. ZETIA [Concomitant]
  12. NAPROSYN [Concomitant]
  13. ONDANSETRON HCL [Concomitant]

REACTIONS (3)
  - Fatigue [Unknown]
  - Diarrhoea [Unknown]
  - Nausea [Unknown]
